FAERS Safety Report 8964273 (Version 1)
Quarter: 2012Q4

REPORT INFORMATION
  Report Type: 
  Country: US (occurrence: US)
  Receive Date: 20121214
  Receipt Date: 20121214
  Transmission Date: 20130627
  Serious: No
  Sender: FDA-Public Use
  Company Number: US-GLAXOSMITHKLINE-A0957130A

PATIENT
  Sex: Male

DRUGS (3)
  1. AVODART [Suspect]
     Indication: BENIGN PROSTATIC HYPERPLASIA
     Dosage: .5MG Per day
     Route: 048
     Dates: start: 20101117, end: 20111207
  2. ASPIRIN [Concomitant]
  3. FLECAINIDE [Concomitant]

REACTIONS (2)
  - Abnormal dreams [Unknown]
  - Nightmare [Unknown]
